FAERS Safety Report 10431922 (Version 2)
Quarter: 2014Q3

REPORT INFORMATION
  Report Type: Spontaneous
  Country: US (occurrence: US)
  Receive Date: 20140905
  Receipt Date: 20140905
  Transmission Date: 20150326
  Serious: Yes (Other)
  Sender: FDA-Public Use
  Company Number: US-ROCHE-1456131

PATIENT
  Age: 63 Year
  Sex: Female

DRUGS (1)
  1. CELLCEPT [Suspect]
     Active Substance: MYCOPHENOLATE MOFETIL\MYCOPHENOLATE MOFETIL HYDROCHLORIDE
     Indication: AUTOIMMUNE DISORDER
     Route: 065

REACTIONS (9)
  - Encephalopathy [Not Recovered/Not Resolved]
  - Visual acuity reduced [Unknown]
  - Dyspnoea [Not Recovered/Not Resolved]
  - Diarrhoea [Unknown]
  - Deafness [Unknown]
  - Vasculitis [Unknown]
  - Meningitis [Unknown]
  - Heart rate increased [Unknown]
  - Sarcoidosis [Unknown]
